FAERS Safety Report 8844523 (Version 1)
Quarter: 2012Q4

REPORT INFORMATION
  Report Type: 
  Country: US (occurrence: US)
  Receive Date: 20121017
  Receipt Date: 20121017
  Transmission Date: 20130627
  Serious: No
  Sender: FDA-Public Use
  Company Number: US-BAUSCH-2012BL002508

PATIENT
  Sex: Female

DRUGS (7)
  1. LATANOPROST OPHTHALMIC SOLUTION 0.005% [Suspect]
     Indication: GLAUCOMA
     Dosage: 1 DROP IN EACH EYE DAILY
     Route: 047
     Dates: start: 201110
  2. METOPROLOL [Suspect]
     Indication: ATRIAL FIBRILLATION
     Route: 048
  3. COLECALCIFEROL [Concomitant]
     Indication: VITAMIN SUPPLEMENTATION
     Route: 048
  4. ASCORBIC ACID [Concomitant]
     Indication: VITAMIN SUPPLEMENTATION
     Route: 048
  5. TOCOPHEROL [Concomitant]
     Indication: VITAMIN SUPPLEMENTATION
     Route: 048
  6. SELENIUM [Concomitant]
     Indication: VITAMIN SUPPLEMENTATION
     Route: 048
  7. ACETYLSALICYLIC ACID [Concomitant]
     Route: 048

REACTIONS (1)
  - Ventricular extrasystoles [Recovering/Resolving]
